FAERS Safety Report 5323984-6 (Version None)
Quarter: 2007Q2

REPORT INFORMATION
  Report Type: 
  Country: None (occurrence: None)
  Receive Date: 20070509
  Receipt Date: 20070509
  Transmission Date: 20071010
  Serious: Yes (Hospitalization)
  Sender: FDA-Public Use
  Company Number: None

PATIENT
  Age: 82 Year
  Sex: Male

DRUGS (11)
  1. APAP W/ CODEINE [Suspect]
     Indication: CYSTOSCOPY
     Dosage: 300MG/30MG 1-2 TABS Q4H PRN
     Dates: start: 20070301, end: 20070307
  2. APAP W/ CODEINE [Suspect]
     Indication: PROCEDURAL PAIN
     Dosage: 300MG/30MG 1-2 TABS Q4H PRN
     Dates: start: 20070301, end: 20070307
  3. AMOXICILLIN [Concomitant]
  4. AMPICILLIN NA [Concomitant]
  5. ATENOLOL [Concomitant]
  6. CLOPIDOGREL BISULFATE [Concomitant]
  7. FLUNISOLIDE [Concomitant]
  8. FUROSEMIDE [Concomitant]
  9. KETOCONAZOLE [Concomitant]
  10. LACTIC ACID [Concomitant]
  11. LEVALBUTEROL HCL [Concomitant]

REACTIONS (2)
  - CONSTIPATION [None]
  - FAECALOMA [None]
